FAERS Safety Report 7905021-X (Version None)
Quarter: 2011Q4

REPORT INFORMATION
  Report Type: 
  Country: None (occurrence: None)
  Receive Date: 20111109
  Receipt Date: 20111103
  Transmission Date: 20120403
  Serious: Yes (Other)
  Sender: FDA-Public Use
  Company Number: PHHY2010US55872

PATIENT
  Sex: Male
  Weight: 72.562 kg

DRUGS (9)
  1. COUMADIN [Concomitant]
     Dosage: UNK
  2. LOCAL ANAESTHETICS [Concomitant]
     Dosage: UNK
     Route: 065
  3. EXJADE [Suspect]
     Dosage: 1500 MG, BID
     Route: 048
  4. VELCADE [Concomitant]
     Dosage: UNK
  5. REVLIMID [Concomitant]
     Dosage: UNK
     Route: 065
  6. NITROGLYCERIN [Concomitant]
     Dosage: UNK
  7. PROCRIT [Concomitant]
     Dosage: UNK
  8. BLOOD TRANSFUSION [Concomitant]
     Dosage: UNK
  9. EXJADE [Suspect]
     Indication: PLASMA PROTEIN METABOLISM DISORDER
     Dosage: 1500 MG, QD
     Route: 048

REACTIONS (5)
  - CORONARY OSTIAL STENOSIS [None]
  - CHROMATURIA [None]
  - MYOCARDIAL INFARCTION [None]
  - BLOOD PRESSURE SYSTOLIC INCREASED [None]
  - ANGINA UNSTABLE [None]
